FAERS Safety Report 7047018-0 (Version None)
Quarter: 2010Q4

REPORT INFORMATION
  Report Type: 
  Country: None (occurrence: None)
  Receive Date: 20101015
  Receipt Date: 20101005
  Transmission Date: 20110411
  Serious: Yes (Other)
  Sender: FDA-Public Use
  Company Number: NL-JNJFOC-20101001843

PATIENT
  Sex: Female

DRUGS (7)
  1. REMICADE [Suspect]
     Indication: RHEUMATOID ARTHRITIS
     Route: 042
  2. METHOTREXATE [Concomitant]
  3. FOLIC ACID [Concomitant]
  4. PANTAZOL [Concomitant]
  5. SELOKEEN [Concomitant]
  6. HYDROCHLOROTHIAZIDE [Concomitant]
  7. FOSINOPRIL SODIUM [Concomitant]
     Dosage: 20 MG 2 DD 1 SINCE MAR-2010

REACTIONS (1)
  - LUPUS NEPHRITIS [None]
